FAERS Safety Report 5070256-3 (Version None)
Quarter: 2006Q3

REPORT INFORMATION
  Report Type: 
  Country: None (occurrence: None)
  Receive Date: 20060714
  Receipt Date: 20060410
  Transmission Date: 20061208
  Serious: No
  Sender: FDA-Public Use
  Company Number: 2006SP001624

PATIENT
  Age: 82 Year
  Sex: Female
  Weight: 54.4316 kg

DRUGS (4)
  1. LUNESTA [Suspect]
     Dosage: 1 MG;ORAL
     Route: 048
     Dates: start: 20060301
  2. LISINOPRIL [Concomitant]
  3. DEMADEX [Concomitant]
  4. DUONEB [Concomitant]

REACTIONS (1)
  - SLEEP WALKING [None]
